FAERS Safety Report 25232013 (Version 2)
Quarter: 2025Q2

REPORT INFORMATION
  Report Type: Spontaneous
  Country: HU (occurrence: HU)
  Receive Date: 20250423
  Receipt Date: 20250502
  Transmission Date: 20250717
  Serious: No
  Sender: SANDOZ
  Company Number: HU-SANDOZ-SDZ2025HU025231

PATIENT
  Age: 10 Year
  Sex: Female

DRUGS (1)
  1. OMNITROPE [Suspect]
     Active Substance: SOMATROPIN
     Indication: Growth disorder
     Route: 065
     Dates: start: 2025

REACTIONS (6)
  - Drug dose omission by device [Unknown]
  - Product dose omission issue [Unknown]
  - Product knowledge deficit [Unknown]
  - Product dispensing error [Unknown]
  - Device malfunction [Unknown]
  - Device issue [Unknown]

NARRATIVE: CASE EVENT DATE: 20250416
